FAERS Safety Report 25906824 (Version 2)
Quarter: 2025Q4

REPORT INFORMATION
  Report Type: Report from Study
  Country: US (occurrence: None)
  Receive Date: 20251010
  Receipt Date: 20251016
  Transmission Date: 20260117
  Serious: Yes (Other)
  Sender: UCB
  Company Number: US-UCBSA-2025059206

PATIENT

DRUGS (20)
  1. FENFLURAMINE [Suspect]
     Active Substance: FENFLURAMINE
     Indication: Lennox-Gastaut syndrome
     Dosage: 3 MILLILITER, 2X/DAY (BID)
  2. FENFLURAMINE [Suspect]
     Active Substance: FENFLURAMINE
     Dosage: UNK
  3. FENFLURAMINE [Suspect]
     Active Substance: FENFLURAMINE
     Dosage: 0.7 MG/KG/DAY TO A TOTAL DOSE OF 11 MG/DAY (5.5 MG BID)
  4. FENFLURAMINE [Suspect]
     Active Substance: FENFLURAMINE
     Dosage: 2.5 MILLILITER, 2X/DAY (BID)
  5. FENFLURAMINE [Suspect]
     Active Substance: FENFLURAMINE
     Dosage: 2.5 MILLILITER, 2X/DAY (BID)
  6. FENFLURAMINE [Suspect]
     Active Substance: FENFLURAMINE
     Dosage: 3.5 MILLILITER, 2X/DAY (BID)
  7. VIMPAT [Concomitant]
     Active Substance: LACOSAMIDE
     Indication: Product used for unknown indication
     Dosage: 50 MG IN THE AM AND 75 MG AT NIGHT -9.5 MG/KG/DAY
  8. VIMPAT [Concomitant]
     Active Substance: LACOSAMIDE
     Dosage: 75 MG TABLET, 1 TABLET IN THE 75 TABLET MORNING, 1.5 TABLET IN THE EVENING
  9. VIMPAT [Concomitant]
     Active Substance: LACOSAMIDE
     Dosage: TAKE 1.5 TABLET (75 MG TOTAL) BY MOUTH IN THE MORNING AND 1.5 TABLETS (75 MG TOTAL) IN THE EVENING
  10. BRIVIACT [Concomitant]
     Active Substance: BRIVARACETAM
     Indication: Product used for unknown indication
     Dosage: 43 MG BID -6.5 MG/KG/DAY
  11. EPIDIOLEX [Concomitant]
     Active Substance: CANNABIDIOL
     Indication: Product used for unknown indication
     Dosage: 200 MILLIGRAM, 2X/DAY (BID)
  12. ONFI [Concomitant]
     Active Substance: CLOBAZAM
     Indication: Product used for unknown indication
     Dosage: 15 MG AT BEDTIME -1.1 MG/KG/DAY
  13. ONFI [Concomitant]
     Active Substance: CLOBAZAM
     Dosage: 12.5 MG AT BEDTIME FOR A WEEK AND THEN 15 MG AT BEDTIME
  14. BIOGAIA GASTRUS ORAL [Concomitant]
     Indication: Product used for unknown indication
     Dosage: 5 DROPS DAILY
  15. VITAMIN D3 [Concomitant]
     Active Substance: CHOLECALCIFEROL
     Indication: Product used for unknown indication
     Dosage: 2 MILLILITER, ONCE DAILY (QD)
  16. DIASTAT [Concomitant]
     Active Substance: DIAZEPAM
     Indication: Seizure
     Dosage: 7.5 MG ONCE AS NEEDED
  17. PREVACID SOLUTAB [Concomitant]
     Active Substance: LANSOPRAZOLE
     Indication: Product used for unknown indication
     Dosage: TAKE 1 TABLET (15 MG 60 TABLET TOTAL) BY MOUTH IN THE  MORNING AND 1 TABLET  (15 MG TOTAL) IN THE  EVENING
  18. CARNITOR [Concomitant]
     Active Substance: LEVOCARNITINE
     Indication: Product used for unknown indication
     Dosage: 2 ML (200 MG TOTAL)  BY ENTERAL ROUTE IN  THE MORNING AND 2  ML (200 MG TOTAL) IN THE EVENING. 2ML TID
  19. Nano VM [Concomitant]
     Indication: Product used for unknown indication
     Dosage: TAKE 3 ML BY MOUTH IN THE MORNING  (ULTIMATE  OMEGA) 592 MG/ML SOLUTION.
  20. SODIUM BICARBONATE [Concomitant]
     Active Substance: SODIUM BICARBONATE
     Indication: Product used for unknown indication
     Dosage: TAKE 1 TABLET (650  MG TOTAL) BY MOUTH IN  THE MORNING AND 1  TABLET (650 MG TOTAL) IN THE EVENING

REACTIONS (10)
  - Aspiration [Not Recovered/Not Resolved]
  - Aortic valve incompetence [Not Recovered/Not Resolved]
  - Mitral valve incompetence [Not Recovered/Not Resolved]
  - Tricuspid valve incompetence [Unknown]
  - Aortic dilatation [Unknown]
  - Sleep apnoea syndrome [Not Recovered/Not Resolved]
  - Hypersensitivity [Not Recovered/Not Resolved]
  - Lung disorder [Not Recovered/Not Resolved]
  - Condition aggravated [Not Recovered/Not Resolved]
  - Left ventricular dysfunction [Unknown]
